FAERS Safety Report 17755088 (Version 2)
Quarter: 2020Q2

REPORT INFORMATION
  Report Type: Spontaneous
  Country: HR (occurrence: HR)
  Receive Date: 20200507
  Receipt Date: 20200630
  Transmission Date: 20200714
  Serious: Yes (Other)
  Sender: FDA-Public Use
  Company Number: NVSC2020HR116243

PATIENT
  Age: 39 Year
  Sex: Female
  Weight: 52 kg

DRUGS (1)
  1. HYRIMOZ [Suspect]
     Active Substance: ADALIMUMAB-ADAZ
     Indication: CROHN^S DISEASE
     Dosage: 40 MG
     Route: 058
     Dates: start: 20190924, end: 20191022

REACTIONS (6)
  - Sialoadenitis [Not Recovered/Not Resolved]
  - Psoriasis [Not Recovered/Not Resolved]
  - Back pain [Unknown]
  - Spondylitis [Not Recovered/Not Resolved]
  - Alopecia [Recovering/Resolving]
  - Pustular psoriasis [Not Recovered/Not Resolved]

NARRATIVE: CASE EVENT DATE: 20191106
